FAERS Safety Report 4492725-7 (Version None)
Quarter: 2004Q4

REPORT INFORMATION
  Report Type: 
  Country: None (occurrence: None)
  Receive Date: 20041104
  Receipt Date: 20040907
  Transmission Date: 20050328
  Serious: Yes (Hospitalization)
  Sender: FDA-Public Use
  Company Number: 200418839GDDC

PATIENT
  Age: 90 Year
  Sex: Female
  Weight: 61 kg

DRUGS (9)
  1. FLUDEX [Suspect]
     Indication: ESSENTIAL HYPERTENSION
     Dosage: DOSE: 1 DF
     Route: 048
     Dates: end: 20040802
  2. DEROXAT [Suspect]
     Dosage: DOSE: UNKNOWN
     Route: 048
     Dates: start: 20040728, end: 20040802
  3. TEMESTA [Concomitant]
     Dosage: DOSE: UNKNOWN
  4. AMOXICILLIN [Concomitant]
     Dosage: DOSE: UNKNOWN
     Dates: end: 20040802
  5. BISOLVON [Concomitant]
     Dosage: DOSE: UNKNOWN
  6. KALEORID [Concomitant]
     Dosage: DOSE: UNKNOWN
  7. ACETAMINOPHEN [Concomitant]
     Dosage: DOSE: UNKNOWN
  8. OMEPRAZOLE [Concomitant]
     Dosage: DOSE: UNKNOWN
  9. MOTILIUM [Concomitant]
     Dosage: DOSE: UNKNOWN
     Dates: end: 20040802

REACTIONS (8)
  - ACCIDENT [None]
  - BLOOD POTASSIUM DECREASED [None]
  - DEPRESSION [None]
  - DRUG INTERACTION [None]
  - FACE INJURY [None]
  - FALL [None]
  - HYPONATRAEMIA [None]
  - MARKEDLY REDUCED DIETARY INTAKE [None]
